FAERS Safety Report 7778272-5 (Version None)
Quarter: 2011Q3

REPORT INFORMATION
  Report Type: 
  Country: None (occurrence: None)
  Receive Date: 20110926
  Receipt Date: 20110923
  Transmission Date: 20111222
  Serious: Yes (Hospitalization, Other)
  Sender: FDA-Public Use
  Company Number: US-BAYER-2011-063284

PATIENT
  Age: 32 Year
  Sex: Male

DRUGS (2)
  1. BETASERON [Suspect]
     Dosage: 8 MIU, QOD
     Route: 058
     Dates: start: 20090130
  2. BETASERON [Suspect]
     Indication: RELAPSING-REMITTING MULTIPLE SCLEROSIS
     Dosage: 8 MIU, QOD
     Route: 058
     Dates: start: 20071218

REACTIONS (10)
  - DRUG HYPERSENSITIVITY [None]
  - VOMITING [None]
  - BINOCULAR EYE MOVEMENT DISORDER [None]
  - HEART RATE INCREASED [None]
  - DIPLOPIA [None]
  - THROAT TIGHTNESS [None]
  - FLUSHING [None]
  - PYREXIA [None]
  - TREMOR [None]
  - DYSPNOEA [None]
